FAERS Safety Report 4807001-X (Version None)
Quarter: 2005Q4

REPORT INFORMATION
  Report Type: 
  Country: None (occurrence: None)
  Receive Date: 20051024
  Receipt Date: 20051011
  Transmission Date: 20060501
  Serious: Yes (Hospitalization)
  Sender: FDA-Public Use
  Company Number: JP-JNJFOC-20050801756

PATIENT
  Sex: Female

DRUGS (5)
  1. REMICADE [Suspect]
     Route: 042
  2. REMICADE [Suspect]
     Indication: RHEUMATOID ARTHRITIS
     Route: 042
  3. METHOTREXATE [Suspect]
     Indication: RHEUMATOID ARTHRITIS
     Route: 048
  4. FOLIAMIN [Concomitant]
     Route: 048
  5. ISCOTIN [Concomitant]
     Route: 048

REACTIONS (2)
  - HYPOXIA [None]
  - PNEUMOCYSTIS JIROVECI PNEUMONIA [None]
